FAERS Safety Report 19271319 (Version 1)
Quarter: 2021Q2

REPORT INFORMATION
  Report Type: Spontaneous
  Country: US (occurrence: US)
  Receive Date: 20210518
  Receipt Date: 20210518
  Transmission Date: 20210717
  Serious: No
  Sender: FDA-Public Use
  Company Number: US-AMNEAL PHARMACEUTICALS-2020-AMRX-02641

PATIENT
  Sex: Male
  Weight: 77 kg

DRUGS (1)
  1. HYDROCORTISONE. [Suspect]
     Active Substance: HYDROCORTISONE
     Indication: ADDISON^S DISEASE
     Dosage: 2 TABLETS MORNING AND HALF TABLET IN AFTERNOON
     Route: 048
     Dates: start: 20200820, end: 20200825

REACTIONS (4)
  - Asthenia [Not Recovered/Not Resolved]
  - Product substitution issue [Unknown]
  - Malaise [Not Recovered/Not Resolved]
  - Acne [Not Recovered/Not Resolved]

NARRATIVE: CASE EVENT DATE: 202008
